FAERS Safety Report 22643332 (Version 3)
Quarter: 2023Q4

REPORT INFORMATION
  Report Type: Report from Study
  Country: US (occurrence: US)
  Receive Date: 20230627
  Receipt Date: 20231116
  Transmission Date: 20240110
  Serious: Yes (Hospitalization, Other)
  Sender: FDA-Public Use
  Company Number: US-UCBSA-2022054043

PATIENT
  Age: 16 Year
  Sex: Female

DRUGS (7)
  1. FINTEPLA [Suspect]
     Active Substance: FENFLURAMINE
     Indication: Severe myoclonic epilepsy of infancy
     Dosage: 6 MILLILITER, 2X/DAY (BID)
     Dates: start: 20210912
  2. FINTEPLA [Suspect]
     Active Substance: FENFLURAMINE
     Dosage: 6 MILLILITER, 2X/DAY (BID)
  3. FINTEPLA [Suspect]
     Active Substance: FENFLURAMINE
     Dosage: 6 MILLILITER, 2X/DAY (BID)
  4. FINTEPLA [Suspect]
     Active Substance: FENFLURAMINE
     Dosage: 13.2 MILLIGRAM, 2X/DAY (BID)
  5. FINTEPLA [Suspect]
     Active Substance: FENFLURAMINE
     Dosage: 6 MILLILITER, 2X/DAY (BID)
  6. FINTEPLA [Suspect]
     Active Substance: FENFLURAMINE
     Dosage: 3.8 MILLILITER, 2X/DAY (BID)
     Dates: start: 20211208
  7. FINTEPLA [Suspect]
     Active Substance: FENFLURAMINE
     Dosage: 3.8 MILLILITER, 2X/DAY (BID)

REACTIONS (10)
  - Seizure [Not Recovered/Not Resolved]
  - Chest pain [Unknown]
  - Dental care [Recovering/Resolving]
  - Personality change [Recovered/Resolved]
  - Headache [Unknown]
  - Face injury [Unknown]
  - Somnolence [Not Recovered/Not Resolved]
  - Depression [Not Recovered/Not Resolved]
  - Emotional disorder [Not Recovered/Not Resolved]
  - Overdose [Unknown]

NARRATIVE: CASE EVENT DATE: 20210912
